FAERS Safety Report 7618456-X (Version None)
Quarter: 2011Q3

REPORT INFORMATION
  Report Type: 
  Country: None (occurrence: None)
  Receive Date: 20110718
  Receipt Date: 20110706
  Transmission Date: 20111222
  Serious: Yes (Hospitalization)
  Sender: FDA-Public Use
  Company Number: FR-MERCK-1107USA01364

PATIENT
  Age: 85 Year
  Sex: Female

DRUGS (14)
  1. EXELON [Concomitant]
     Dosage: 24 MG/24H
     Route: 065
  2. REPAGLINIDE [Suspect]
     Route: 048
     Dates: end: 20110408
  3. VALSARTAN  AND HYDROCHLOROTHIAZIDE [Concomitant]
     Route: 065
  4. JANUVIA [Suspect]
     Indication: TYPE 2 DIABETES MELLITUS
     Route: 048
  5. REPAGLINIDE [Suspect]
     Route: 048
     Dates: end: 20110408
  6. REPAGLINIDE [Suspect]
     Route: 048
  7. LANTUS [Suspect]
     Route: 058
     Dates: end: 20110408
  8. LERCANIDIPINE [Concomitant]
     Route: 065
  9. REPAGLINIDE [Suspect]
     Route: 048
     Dates: end: 20110408
  10. REPAGLINIDE [Suspect]
     Route: 048
  11. LANTUS [Suspect]
     Route: 058
  12. REPAGLINIDE [Suspect]
     Route: 048
  13. BISOPROLOL FUMARATE [Concomitant]
     Route: 065
  14. MODOPAR [Concomitant]
     Route: 065

REACTIONS (1)
  - MALAISE [None]
